FAERS Safety Report 25492194 (Version 1)
Quarter: 2025Q2

REPORT INFORMATION
  Report Type: Spontaneous
  Country: IN (occurrence: IN)
  Receive Date: 20250630
  Receipt Date: 20250630
  Transmission Date: 20250717
  Serious: Yes (Other)
  Sender: ACCORD
  Company Number: IN-MLMSERVICE-20250615-PI540202-00152-7

PATIENT
  Age: 64 Year
  Sex: Male
  Weight: 66 kg

DRUGS (6)
  1. FLUOROURACIL [Suspect]
     Active Substance: FLUOROURACIL
     Indication: Adenocarcinoma of colon
     Dosage: 12 CYCLES AT INTERVALS OF 2 WEEK, PARENTERALLY
     Dates: start: 201801, end: 201806
  2. OXALIPLATIN [Suspect]
     Active Substance: OXALIPLATIN
     Indication: Adenocarcinoma of colon
     Dosage: 12 CYCLES AT INTERVALS OF 2 WEEK, VIA PARENTERALLY
     Dates: start: 201801, end: 201806
  3. LEUCOVORIN [Suspect]
     Active Substance: LEUCOVORIN\LEUCOVORIN CALCIUM
     Indication: Adenocarcinoma of colon
     Dosage: 12 CYCLES AT INTERVALS OF 2 WEEK
     Dates: start: 201801, end: 201806
  4. LEUCOVORIN [Suspect]
     Active Substance: LEUCOVORIN\LEUCOVORIN CALCIUM
     Indication: Metastases to lymph nodes
     Dosage: 12 CYCLES AT INTERVALS OF 2 WEEK
     Dates: start: 201801, end: 201806
  5. OXALIPLATIN [Suspect]
     Active Substance: OXALIPLATIN
     Indication: Metastases to lymph nodes
     Dosage: 12 CYCLES AT INTERVALS OF 2 WEEK
     Dates: start: 201801, end: 201806
  6. FLUOROURACIL [Suspect]
     Active Substance: FLUOROURACIL
     Indication: Metastases to lymph nodes
     Dosage: 12 CYCLES AT INTERVALS OF 2 WEEK, VIA PARENTERALLY
     Dates: start: 201801, end: 201806

REACTIONS (1)
  - Peripheral sensory neuropathy [Recovering/Resolving]

NARRATIVE: CASE EVENT DATE: 20180101
